FAERS Safety Report 20341137 (Version 1)
Quarter: 2022Q1

REPORT INFORMATION
  Report Type: Spontaneous
  Country: CN (occurrence: CN)
  Receive Date: 20220117
  Receipt Date: 20220117
  Transmission Date: 20220424
  Serious: Yes (Hospitalization)
  Sender: FDA-Public Use
  Company Number: CN-SA-SAC20220111001072

PATIENT
  Age: 70 Year
  Sex: Male
  Weight: 61 kg

DRUGS (3)
  1. PLAVIX [Suspect]
     Active Substance: CLOPIDOGREL BISULFATE
     Indication: Arteriosclerosis coronary artery
     Dosage: 75MGQD
     Route: 048
     Dates: start: 20211227, end: 20220106
  2. ASPIRIN [Suspect]
     Active Substance: ASPIRIN
     Indication: Arteriosclerosis coronary artery
     Dosage: 100MG QD
     Route: 048
     Dates: start: 20211227, end: 20220106
  3. INDOBUFEN [Concomitant]
     Active Substance: INDOBUFEN
     Dosage: 0.5 G, BID
     Dates: start: 20220106

REACTIONS (4)
  - Cough [Unknown]
  - Tachypnoea [Unknown]
  - Occult blood positive [Unknown]
  - Pneumonitis [Unknown]

NARRATIVE: CASE EVENT DATE: 20211201
